FAERS Safety Report 24551672 (Version 2)
Quarter: 2024Q4

REPORT INFORMATION
  Report Type: Spontaneous
  Country: ES (occurrence: ES)
  Receive Date: 20241026
  Receipt Date: 20241116
  Transmission Date: 20250114
  Serious: Yes (Hospitalization, Other)
  Sender: AUROBINDO
  Company Number: ES-AEMPS-1577346

PATIENT
  Age: 27 Year
  Sex: Male

DRUGS (4)
  1. OMEPRAZOLE [Suspect]
     Active Substance: OMEPRAZOLE
     Indication: Tooth extraction
     Dosage: 20 MILLIGRAM, ONCE A DAY
     Route: 048
     Dates: start: 20240610, end: 20240617
  2. AMOXICILLIN\CLAVULANIC ACID [Suspect]
     Active Substance: AMOXICILLIN\CLAVULANIC ACID
     Indication: Tooth extraction
     Dosage: UNK
     Route: 048
     Dates: start: 20240610, end: 20240617
  3. IBUPROFEN [Suspect]
     Active Substance: IBUPROFEN
     Indication: Tooth extraction
     Dosage: UNK
     Route: 048
     Dates: start: 20240610, end: 20240611
  4. DEFLAZACORT [Suspect]
     Active Substance: DEFLAZACORT
     Indication: Tooth extraction
     Dosage: UNK
     Route: 048
     Dates: start: 20240610, end: 20240616

REACTIONS (2)
  - Acute generalised exanthematous pustulosis [Recovered/Resolved]
  - Product use in unapproved indication [Unknown]

NARRATIVE: CASE EVENT DATE: 20240617
